FAERS Safety Report 12852219 (Version 1)
Quarter: 2016Q4

REPORT INFORMATION
  Report Type: Spontaneous
  Country: US (occurrence: US)
  Receive Date: 20161014
  Receipt Date: 20161014
  Transmission Date: 20170207
  Serious: Yes (Other)
  Sender: FDA-Public Use
  Company Number: None

PATIENT
  Age: 1 Year
  Sex: Female
  Weight: 9 kg

DRUGS (1)
  1. BABY TEETHING (HYLAND HOMEOPATHIC) [Suspect]
     Active Substance: HOMEOPATHICS
     Indication: TEETHING
     Dosage: ?          QUANTITY:24 TABLET(S);?
     Route: 048
     Dates: start: 20161009, end: 20161010

REACTIONS (4)
  - Cyanosis [None]
  - Loss of consciousness [None]
  - Seizure [None]
  - Respiratory arrest [None]

NARRATIVE: CASE EVENT DATE: 20161010
